FAERS Safety Report 5005137-4 (Version None)
Quarter: 2006Q2

REPORT INFORMATION
  Report Type: 
  Country: None (occurrence: None)
  Receive Date: 20060518
  Receipt Date: 20060418
  Transmission Date: 20061013
  Serious: Yes (Other)
  Sender: FDA-Public Use
  Company Number: PHEH2006US05122

PATIENT
  Age: 36 Year
  Sex: Male

DRUGS (3)
  1. RITALIN-SR [Suspect]
     Indication: NARCOLEPSY
     Dosage: 20MG PO QAM
     Route: 048
     Dates: start: 20000101
  2. RITALIN [Suspect]
     Indication: NARCOLEPSY
     Dosage: 10 MG, BID
     Route: 048
     Dates: start: 20000101
  3. PROVIGIL [Suspect]
     Indication: NARCOLEPSY
     Dosage: 200 MG, TID
     Route: 048
     Dates: start: 20000301

REACTIONS (3)
  - DELUSION [None]
  - HALLUCINATIONS, MIXED [None]
  - SCHIZOPHRENIA [None]
